FAERS Safety Report 4985757-3 (Version None)
Quarter: 2006Q2

REPORT INFORMATION
  Report Type: 
  Country: None (occurrence: None)
  Receive Date: 20060428
  Receipt Date: 20060223
  Transmission Date: 20061013
  Serious: No
  Sender: FDA-Public Use
  Company Number: US-GLAXOSMITHKLINE-A0594972A

PATIENT
  Age: 73 Year
  Sex: Female

DRUGS (3)
  1. ZOFRAN [Suspect]
     Indication: PROPHYLAXIS OF NAUSEA AND VOMITING
     Dosage: 32MG SINGLE DOSE
     Route: 042
     Dates: start: 20060223, end: 20060223
  2. DEXAMETHASONE [Concomitant]
  3. SALINE [Concomitant]

REACTIONS (3)
  - ERYTHEMA [None]
  - INFUSION SITE REACTION [None]
  - SKIN WARM [None]
